FAERS Safety Report 8532256-8 (Version None)
Quarter: 2012Q3

REPORT INFORMATION
  Report Type: 
  Country: None (occurrence: None)
  Receive Date: 20120724
  Receipt Date: 20120718
  Transmission Date: 20120928
  Serious: Yes (Hospitalization)
  Sender: FDA-Public Use
  Company Number: GB-AMGEN-GBRSP2012036707

PATIENT
  Age: 73 Year
  Sex: Female

DRUGS (9)
  1. THYROID THERAPY [Concomitant]
  2. LEVOTHYROXINE SODIUM [Concomitant]
  3. AMLODIPINE [Concomitant]
  4. CORTICOSTEROID NOS [Concomitant]
  5. PROLIA [Suspect]
     Indication: PRODUCT USED FOR UNKNOWN INDICATION
     Dosage: 60 MG, Q6MO
     Dates: start: 20111201
  6. PREDNISOLONE [Concomitant]
     Indication: POLYMYALGIA RHEUMATICA
     Dosage: 5 MG, ONE TIME DOSE
     Route: 048
     Dates: start: 20050101
  7. BENDROFLUMETHIAZIDE [Concomitant]
  8. ENALAPRIL MALEATE [Concomitant]
  9. LANSOPRAZOLE [Concomitant]

REACTIONS (1)
  - PULMONARY EMBOLISM [None]
